FAERS Safety Report 9675139 (Version 1)
Quarter: 2013Q4

REPORT INFORMATION
  Report Type: Spontaneous
  Country: US (occurrence: None)
  Receive Date: 20131106
  Receipt Date: 20131106
  Transmission Date: 20140711
  Serious: No
  Sender: FDA-Public Use
  Company Number: None

PATIENT
  Age: 66 Year
  Sex: Male
  Weight: 77.11 kg

DRUGS (6)
  1. NAMENDA [Suspect]
     Route: 048
     Dates: start: 20130613, end: 20130710
  2. CITOLOPRAM 15MG [Concomitant]
  3. CARBIDOPA (LEVODOPA) [Concomitant]
  4. CLOROZEPAM [Concomitant]
  5. ROPINIRIN [Concomitant]
  6. ASPIRIN [Concomitant]

REACTIONS (3)
  - Diarrhoea [None]
  - Diarrhoea [None]
  - Weight decreased [None]
